FAERS Safety Report 26113185 (Version 2)
Quarter: 2025Q4

REPORT INFORMATION
  Report Type: Spontaneous
  Country: US (occurrence: US)
  Receive Date: 20251202
  Receipt Date: 20251216
  Transmission Date: 20260118
  Serious: No
  Sender: ALEMBIC
  Company Number: US-ALEMBIC PHARMACUETICALS LIMITED-2025SCAL001591

PATIENT

DRUGS (1)
  1. DAPSONE [Suspect]
     Active Substance: DAPSONE
     Indication: Product used for unknown indication
     Dosage: UNK
     Route: 061

REACTIONS (3)
  - Therapy interrupted [Unknown]
  - Drug dose omission by device [Unknown]
  - Drug delivery system issue [Unknown]
